FAERS Safety Report 8160386-1 (Version None)
Quarter: 2012Q1

REPORT INFORMATION
  Report Type: 
  Country: None (occurrence: None)
  Receive Date: 20120223
  Receipt Date: 20120220
  Transmission Date: 20120608
  Serious: Yes (Other)
  Sender: FDA-Public Use
  Company Number: GB-PFIZER INC-2012046301

PATIENT
  Age: 37 Year
  Sex: Male

DRUGS (1)
  1. NEURONTIN [Suspect]
     Indication: EPILEPSY
     Dosage: 300 MG, UNK

REACTIONS (3)
  - CONVULSION [None]
  - DRUG INEFFECTIVE [None]
  - STATUS EPILEPTICUS [None]
